FAERS Safety Report 18528748 (Version 3)
Quarter: 2021Q1

REPORT INFORMATION
  Report Type: Not Available
  Country: None (occurrence: None)
  Receive Date: 20201120
  Receipt Date: 20210106
  Transmission Date: 20210419
  Serious: Yes (Hospitalization, Other)
  Sender: FDA-Public Use
  Company Number: US-AKORN PHARMACEUTICALS-2020AKN01461

PATIENT
  Age: 33 Year
  Sex: Female

DRUGS (1)
  1. MYORISAN [Suspect]
     Active Substance: ISOTRETINOIN

REACTIONS (4)
  - Off label use [Recovered/Resolved]
  - Ectopic pregnancy [Recovered/Resolved]
  - Treatment noncompliance [Recovered/Resolved]
  - Exposure during pregnancy [Recovered/Resolved]
